FAERS Safety Report 15403638 (Version 1)
Quarter: 2018Q3

REPORT INFORMATION
  Report Type: Spontaneous
  Country: US (occurrence: US)
  Receive Date: 20180918
  Receipt Date: 20180918
  Transmission Date: 20181010
  Serious: Yes (Other)
  Sender: FDA-Public Use
  Company Number: None

PATIENT
  Age: 64 Year
  Sex: Female
  Weight: 67.5 kg

DRUGS (10)
  1. TEKTURNA [Concomitant]
     Active Substance: ALISKIREN HEMIFUMARATE
  2. SYNTHROID [Concomitant]
     Active Substance: LEVOTHYROXINE SODIUM
  3. FISH OIL [Concomitant]
     Active Substance: FISH OIL
  4. EVENING PRIMROSE OIL [Concomitant]
     Active Substance: EVENING PRIMROSE OIL\HERBALS
  5. LOSARTAN. [Concomitant]
     Active Substance: LOSARTAN
  6. MINIVELLE [Concomitant]
     Active Substance: ESTRADIOL
  7. MAGNESIUM [Concomitant]
     Active Substance: MAGNESIUM
  8. COENZYME Q10 [Concomitant]
     Active Substance: UBIDECARENONE
  9. YUVAFEM [Suspect]
     Active Substance: ESTRADIOL HEMIHYDRATE
     Indication: ATROPHIC VULVOVAGINITIS
     Dosage: ?          QUANTITY:1 TABLET(S);?
     Route: 067
  10. MULTIVITAMIN [Concomitant]
     Active Substance: VITAMINS

REACTIONS (6)
  - Therapeutic response changed [None]
  - Drug ineffective [None]
  - Vaginal disorder [None]
  - Bladder disorder [None]
  - Product substitution issue [None]
  - Insurance issue [None]

NARRATIVE: CASE EVENT DATE: 20180801
